FAERS Safety Report 16181083 (Version 2)
Quarter: 2019Q2

REPORT INFORMATION
  Report Type: Spontaneous
  Country: US (occurrence: US)
  Receive Date: 20190410
  Receipt Date: 20190412
  Transmission Date: 20190711
  Serious: Yes (Other)
  Sender: FDA-Public Use
  Company Number: US-PFIZER INC-2019147279

PATIENT
  Age: 50 Year
  Sex: Female

DRUGS (26)
  1. EPINEPHRINE. [Suspect]
     Active Substance: EPINEPHRINE
     Dosage: UNK,(TIME 1621), (EPINEPHRINE DRIP INCREASED TO 3 UG.KG^1.MIN^1), (CUMULATIVE DOSE UG 1280)
     Route: 041
  2. EPINEPHRINE. [Suspect]
     Active Substance: EPINEPHRINE
     Dosage: UNK, (TIME 1736), (EPINEPHRINE DRIP DECREASED TO 0.1 UG.KG^1.MIN^1), (CUMULATIVE DOSE UG 7262)
     Route: 041
  3. EPINEPHRINE. [Suspect]
     Active Substance: EPINEPHRINE
     Dosage: 7 MG, UNK,(A TOTAL OF 7 MG OF EPINEPHRINE)
  4. EPINEPHRINE. [Suspect]
     Active Substance: EPINEPHRINE
     Dosage: UNK, (TIME 1726), (EPINEPHRINE DRIP DECREASED TO 0.5 UG.KG^1.MIN^1),(CUMU;ATIVE DOSE UG 6912)
     Route: 041
  5. EPINEPHRINE. [Suspect]
     Active Substance: EPINEPHRINE
     Dosage: 0.5 MG, UNK,(TIME 1613), (CUMULATIVE DOSE UG 500)
     Route: 030
  6. EPINEPHRINE. [Suspect]
     Active Substance: EPINEPHRINE
     Dosage: UNK,(TIME 1619), (EPINEPHRINE DRIP INITIATED AT 2 UG.KG^1.MIN^1) (CUMULATIVE DOSE UG 1000)
     Route: 041
  7. EPINEPHRINE. [Suspect]
     Active Substance: EPINEPHRINE
     Dosage: UNK,(TIME 1656), (EPINEPHRINE DRIP INCREASED TO 0.1UG.KG^1.MIN^1),(CUMULATIVE DOSE UG 5530)
     Route: 041
  8. EPINEPHRINE. [Suspect]
     Active Substance: EPINEPHRINE
     Dosage: UNK,(TIME 1631), (EPINEPHRINE DRIP DECREASED TO 1 UG.KG^1.MIN^1),(CUMULATIVE DOSE UG 4380)
     Route: 041
  9. EPINEPHRINE. [Suspect]
     Active Substance: EPINEPHRINE
     Dosage: UNK,(TIME 1642),(EPINEPHRINE DRIP RESTARTED AT 0.3UG.KG^1.MIN^1), (CUMULATIVE DOSE 5430)
     Route: 041
  10. EPINEPHRINE. [Suspect]
     Active Substance: EPINEPHRINE
     Dosage: UNK,(TIME 1700), (EPINEPHRINE DRIP INCREASED TO 0.5 UG.KG^1.MIN^1),(CUMULATIVE DOSE UG 5558)
     Route: 041
  11. EPINEPHRINE. [Suspect]
     Active Substance: EPINEPHRINE
     Dosage: UNK,(TIME 1710), (EPINEPHRINE DRIP INCREASED TO 1 UG.KG^1.MIN^1),(CUMULATIVE DOSE UG 5908)
     Route: 041
  12. NITROGLYCERIN. [Concomitant]
     Active Substance: NITROGLYCERIN
     Dosage: UNK, (TIME 1721),(NITROGLYCERIN DRIP RESTARTED AT 20 UG/MIN)
     Route: 041
  13. EPINEPHRINE. [Suspect]
     Active Substance: EPINEPHRINE
     Indication: ANAPHYLACTIC REACTION
     Dosage: 0.5 MG, UNK,(4 DOSES OF 0.5 MG INTRAMUSCULAR EPINEPHRINE WITHIN A 15-MINUTE TIME SPAN)
     Route: 030
  14. EPINEPHRINE. [Suspect]
     Active Substance: EPINEPHRINE
     Dosage: UNK(A CONTINUOUS EPINEPHRINE INFUSION AT 2 UG.KG^MIN^1)
  15. EPINEPHRINE. [Suspect]
     Active Substance: EPINEPHRINE
     Dosage: 0.5 MG, UNK,(TIME 1623),(0.5 MG EPINEPHRINE IM),(CUMULATIVE DOSE UG 1780)
     Route: 030
  16. EPINEPHRINE. [Suspect]
     Active Substance: EPINEPHRINE
     Dosage: UNK,(TIME 1645),(EPINEPHRINE DRIP DECREASED TO 0.1 UG.KG^1.MIN^1),(CUMULATIVE DOSE UG  5493)
     Route: 041
  17. EPINEPHRINE. [Suspect]
     Active Substance: EPINEPHRINE
     Dosage: UNK, (TIME 1745), (EPINEPHRINE DRIP STOPPED) (CUMULATIVE DOSE UG 7315)
     Route: 041
  18. NITROGLYCERIN. [Concomitant]
     Active Substance: NITROGLYCERIN
     Indication: HYPERTENSION
     Dosage: 10 UNK, UNK,(NITROGLYCERIN DRIP STARTED AT 10 UG/MIN),(TIME 1631)
     Route: 041
  19. EPINEPHRINE. [Suspect]
     Active Substance: EPINEPHRINE
     Dosage: UNK (TITRATED UP TO 3 UG.KG^1MIN^1)
  20. EPINEPHRINE. [Suspect]
     Active Substance: EPINEPHRINE
     Dosage: 0.5 MG, UNK (TIME 1618),(CUMULATIVE DOSE 1000)
     Route: 030
  21. EPINEPHRINE. [Suspect]
     Active Substance: EPINEPHRINE
     Dosage: 0.5 MG, UNK ,(TIME 1628),(0.5 MG EPINEPHRINE IM), (CUMULATIVE DOSE UG 2280)
     Route: 030
  22. EPINEPHRINE. [Suspect]
     Active Substance: EPINEPHRINE
     Dosage: UNK,(TIME 1648),(EPINEPHRINE DRIP DECREASED TO 0.03 UG.KG^1.MIN^1),(CUMULATIVE DOSE UG 5514)
     Route: 041
  23. EPINEPHRINE. [Suspect]
     Active Substance: EPINEPHRINE
     Dosage: UNK,(TIME 1717), (EPINEPHRINE DRIP DECREASED TO 0.8 UG.KG^1.MIN^1),(CUMULATIVE DOSE UG 6348)
     Route: 041
  24. EPINEPHRINE. [Suspect]
     Active Substance: EPINEPHRINE
     Dosage: UNK, (TIME 1721), (EPINEPHRINE DRIP INCREASED TO 1 UG.KG^1.MIN^1),(CUMULATIVE DOSE UG 6562)
     Route: 041
  25. NITROGLYCERIN. [Concomitant]
     Active Substance: NITROGLYCERIN
     Dosage: UNK,(TIME 1641 NITROGLYCERIN DRIP HELD)
     Route: 041
  26. EPINEPHRINE. [Suspect]
     Active Substance: EPINEPHRINE
     Dosage: UNK,(TIME 1641), (EPINEPHRINE DRIP HELD PER PATIENT REQUEST), (CUMULATIVE DOSE UG 5430)
     Route: 041

REACTIONS (1)
  - Stress cardiomyopathy [Unknown]
